FAERS Safety Report 4480763-X (Version None)
Quarter: 2004Q4

REPORT INFORMATION
  Report Type: 
  Country: None (occurrence: None)
  Receive Date: 20041019
  Receipt Date: 20041012
  Transmission Date: 20050328
  Serious: Yes (Death)
  Sender: FDA-Public Use
  Company Number: 2004UW21280

PATIENT
  Age: 70 Year
  Sex: Male
  Weight: 77.11 kg

DRUGS (9)
  1. SEROQUEL [Suspect]
     Dosage: 300 MG HS PO
     Route: 048
  2. NEURONTIN [Concomitant]
  3. RISPERDAL [Concomitant]
  4. ATIVAN [Concomitant]
  5. REMERON [Concomitant]
  6. LITHIUM [Concomitant]
  7. LISINOPRIL [Concomitant]
  8. PREVACID [Concomitant]
  9. DILANTIN [Concomitant]

REACTIONS (2)
  - CARDIOVASCULAR DISORDER [None]
  - OVERDOSE [None]
